FAERS Safety Report 4524345-X (Version None)
Quarter: 2004Q4

REPORT INFORMATION
  Report Type: 
  Country: None (occurrence: None)
  Receive Date: 20041119
  Receipt Date: 20040923
  Transmission Date: 20050328
  Serious: Yes (Other)
  Sender: FDA-Public Use
  Company Number: PHEH2004US08819

PATIENT
  Age: 78 Year
  Sex: Female
  Weight: 59 kg

DRUGS (5)
  1. ZELNORM [Suspect]
     Indication: IRRITABLE BOWEL SYNDROME
     Dosage: 6 MG, QD
     Dates: start: 20040814
  2. AZMACORT [Concomitant]
  3. PROVENTIL (SALBUTAMOL SULFATE) [Concomitant]
  4. ACCOLATE [Concomitant]
  5. THYROID TAB [Concomitant]

REACTIONS (4)
  - BRONCHOSPASM [None]
  - CHEST PAIN [None]
  - DYSPNOEA [None]
  - WHEEZING [None]
